FAERS Safety Report 16742051 (Version 1)
Quarter: 2019Q3

REPORT INFORMATION
  Report Type: Spontaneous
  Country: GB (occurrence: GB)
  Receive Date: 20190826
  Receipt Date: 20190826
  Transmission Date: 20191005
  Serious: Yes (Life-Threatening, Other)
  Sender: FDA-Public Use
  Company Number: GB-TEVA-2019-GB-1096196

PATIENT
  Age: 86 Year
  Sex: Female
  Weight: 81 kg

DRUGS (9)
  1. FUROSEMIDE. [Concomitant]
     Active Substance: FUROSEMIDE
     Dosage: EACH MORNING, 1 DF
     Dates: start: 20190515
  2. PREDNISOLONE. [Concomitant]
     Active Substance: PREDNISOLONE
     Dosage: REDUCE BY 1MG EVERY 2-3 WEEKS
     Dates: start: 20181217
  3. ALENDRONIC ACID [Concomitant]
     Active Substance: ALENDRONIC ACID
     Dosage: SWALLOW WITH PLENTY OF WATER, 1 DF
     Dates: start: 20181217
  4. IBUPROFEN. [Suspect]
     Active Substance: IBUPROFEN
     Dosage: 400 MG
  5. DOXAZOSIN [Concomitant]
     Active Substance: DOXAZOSIN MESYLATE
     Dosage: IN THE MORNING, 1 DF
     Dates: start: 20181217
  6. LOSARTAN. [Concomitant]
     Active Substance: LOSARTAN
     Dosage: 1 DF
     Dates: start: 20181217
  7. OMEPRAZOLE. [Concomitant]
     Active Substance: OMEPRAZOLE
     Dosage: 1 DF
     Dates: start: 20190115
  8. AMOXICILLIN. [Concomitant]
     Active Substance: AMOXICILLIN
     Dosage: 3 DF
     Dates: start: 20190621, end: 20190626
  9. ADCAL [Concomitant]
     Dosage: 4 DF
     Dates: start: 20190115

REACTIONS (1)
  - Tubulointerstitial nephritis [Recovering/Resolving]
